FAERS Safety Report 10244093 (Version 1)
Quarter: 2014Q2

REPORT INFORMATION
  Report Type: Spontaneous
  Country: US (occurrence: None)
  Receive Date: 20140616
  Receipt Date: 20140616
  Transmission Date: 20141212
  Serious: No
  Sender: FDA-Public Use
  Company Number: None

PATIENT
  Age: 55 Year
  Sex: Female
  Weight: 104.33 kg

DRUGS (1)
  1. QSYMIA [Suspect]
     Indication: WEIGHT DECREASED
     Dosage: 1 PILL ONCE DAILY TAKEN BY MOUTH
     Route: 048
     Dates: start: 20140205, end: 20140612

REACTIONS (5)
  - Dyspepsia [None]
  - Choking [None]
  - Fear [None]
  - Malaise [None]
  - Drug ineffective [None]
